FAERS Safety Report 9312047 (Version 2)
Quarter: 2013Q2

REPORT INFORMATION
  Report Type: Spontaneous
  Country: BR (occurrence: BR)
  Receive Date: 20130528
  Receipt Date: 20130620
  Transmission Date: 20140414
  Serious: Yes (Other)
  Sender: FDA-Public Use
  Company Number: PHHY2013BR052783

PATIENT
  Age: 9 Year
  Sex: Male

DRUGS (3)
  1. RITALINA [Suspect]
     Indication: ATTENTION DEFICIT/HYPERACTIVITY DISORDER
     Dosage: 10 MG,(2 DF)  DAILY
     Route: 048
     Dates: start: 201111
  2. RITALINA [Suspect]
     Dosage: 10 MG, DAILY
     Route: 048
  3. RITALINA [Suspect]
     Dosage: 5 MG, DAILY
     Route: 048

REACTIONS (3)
  - Depression [Recovered/Resolved]
  - Agitation [Not Recovered/Not Resolved]
  - Disturbance in attention [Not Recovered/Not Resolved]
